FAERS Safety Report 4781503-7 (Version None)
Quarter: 2005Q3

REPORT INFORMATION
  Report Type: 
  Country: None (occurrence: None)
  Receive Date: 20050923
  Receipt Date: 20050915
  Transmission Date: 20060218
  Serious: Yes (Hospitalization)
  Sender: FDA-Public Use
  Company Number: ZICO001293

PATIENT
  Age: 70 Year
  Sex: Female

DRUGS (1)
  1. PRIALT [Suspect]
     Indication: DRUG USE FOR UNKNOWN INDICATION
     Dosage: INTRATHECAL
     Route: 037
     Dates: start: 20050101

REACTIONS (4)
  - ABDOMINAL PAIN [None]
  - DIZZINESS [None]
  - HYPOTENSION [None]
  - SYNCOPE [None]
